FAERS Safety Report 14576972 (Version 3)
Quarter: 2018Q3

REPORT INFORMATION
  Report Type: Spontaneous
  Country: US (occurrence: US)
  Receive Date: 20180227
  Receipt Date: 20180711
  Transmission Date: 20181010
  Serious: No
  Sender: FDA-Public Use
  Company Number: US-BEH-2018088197

PATIENT
  Age: 62 Year
  Sex: Female
  Weight: 61.2 kg

DRUGS (2)
  1. HIZENTRA [Suspect]
     Active Substance: HUMAN IMMUNOGLOBULIN G
     Indication: IMMUNODEFICIENCY
     Dosage: UNK
     Route: 058
     Dates: start: 2010, end: 20180701
  2. HIZENTRA [Suspect]
     Active Substance: HUMAN IMMUNOGLOBULIN G
     Dosage: 11 G, QOW
     Route: 058
     Dates: start: 20180127, end: 20180127

REACTIONS (8)
  - Infusion site swelling [Unknown]
  - Infusion site swelling [Recovered/Resolved]
  - Infusion site pain [Recovered/Resolved]
  - Paraesthesia [Recovered/Resolved]
  - Paraesthesia [Unknown]
  - Infusion site discolouration [Unknown]
  - Infusion site discolouration [Recovered/Resolved]
  - Infusion site pain [Not Recovered/Not Resolved]

NARRATIVE: CASE EVENT DATE: 20180127
